FAERS Safety Report 5930753-2 (Version None)
Quarter: 2008Q4

REPORT INFORMATION
  Report Type: 
  Country: None (occurrence: None)
  Receive Date: 20081021
  Receipt Date: 20081007
  Transmission Date: 20090506
  Serious: Yes (Hospitalization, Other)
  Sender: FDA-Public Use
  Company Number: 2008BI027399

PATIENT
  Age: 38 Year
  Sex: Male

DRUGS (10)
  1. TYSABRI [Suspect]
     Indication: RELAPSING-REMITTING MULTIPLE SCLEROSIS
     Dosage: 300 MG; QM; IV
     Route: 042
     Dates: start: 20070101
  2. ACETYLSALICYLIC ACID SRT [Concomitant]
  3. NEXIUM [Concomitant]
  4. ENALAPRIL MALEATE [Concomitant]
  5. APONAL [Concomitant]
  6. PLAVIX [Concomitant]
  7. ALDACTONE [Concomitant]
  8. BELOC-ZOK [Concomitant]
  9. TOREM [Concomitant]
  10. NITROGLYCERIN [Concomitant]

REACTIONS (7)
  - CONDITION AGGRAVATED [None]
  - GAIT DISTURBANCE [None]
  - MENTAL DISORDER [None]
  - MULTIPLE SCLEROSIS RELAPSE [None]
  - MYOCARDIAL INFARCTION [None]
  - PERSONALITY CHANGE [None]
  - SENSATION OF HEAVINESS [None]
